FAERS Safety Report 25347780 (Version 1)
Quarter: 2025Q2

REPORT INFORMATION
  Report Type: Report from Study
  Country: GB (occurrence: GB)
  Receive Date: 20250522
  Receipt Date: 20250522
  Transmission Date: 20250716
  Serious: Yes (Hospitalization)
  Sender: TEVA
  Company Number: GB-TEVA-VS-3331927

PATIENT
  Age: 44 Year
  Sex: Female

DRUGS (1)
  1. AJOVY [Suspect]
     Active Substance: FREMANEZUMAB-VFRM
     Indication: Migraine
     Route: 058

REACTIONS (6)
  - Abdominal pain [Recovering/Resolving]
  - Abdominal distension [Recovering/Resolving]
  - Constipation [Not Recovered/Not Resolved]
  - Nausea [Recovering/Resolving]
  - Loss of personal independence in daily activities [Unknown]
  - Inappropriate schedule of product administration [Unknown]
